FAERS Safety Report 7995507-4 (Version None)
Quarter: 2011Q4

REPORT INFORMATION
  Report Type: 
  Country: None (occurrence: None)
  Receive Date: 20111220
  Receipt Date: 20111209
  Transmission Date: 20120403
  Serious: Yes (Other)
  Sender: FDA-Public Use
  Company Number: US-BAYER-2011-118945

PATIENT
  Sex: Female

DRUGS (3)
  1. YAZ [Suspect]
     Dosage: UNK
     Dates: start: 20090401, end: 20090701
  2. YASMIN [Suspect]
     Dosage: UNK
     Dates: start: 20090401, end: 20090701
  3. DROSPIRENONE AND ETHINYL ESTRADIOL [Suspect]
     Dosage: UNK
     Dates: start: 20090701, end: 20091201

REACTIONS (4)
  - PANCREATITIS [None]
  - PAIN [None]
  - INJURY [None]
  - PLEURAL EFFUSION [None]
